FAERS Safety Report 6307505-7 (Version None)
Quarter: 2009Q3

REPORT INFORMATION
  Report Type: 
  Country: None (occurrence: None)
  Receive Date: 20090810
  Receipt Date: 20090225
  Transmission Date: 20100115
  Serious: Yes (Life-Threatening, Hospitalization, Disabling)
  Sender: FDA-Public Use
  Company Number: US-JNJFOC-20090206413

PATIENT
  Age: 36 Month
  Sex: Female

DRUGS (3)
  1. CHILDREN'S MOTRIN [Suspect]
     Indication: COUGH
  2. CHILDREN'S MOTRIN [Suspect]
     Indication: PYREXIA
  3. ACETAMINOPHEN [Suspect]
     Indication: DRUG USE FOR UNKNOWN INDICATION

REACTIONS (2)
  - BLINDNESS [None]
  - TOXIC EPIDERMAL NECROLYSIS [None]
